FAERS Safety Report 15249513 (Version 1)
Quarter: 2018Q3

REPORT INFORMATION
  Report Type: Spontaneous
  Country: US (occurrence: US)
  Receive Date: 20180807
  Receipt Date: 20180807
  Transmission Date: 20181010
  Serious: No
  Sender: FDA-Public Use
  Company Number: US-PERRIGO-18US004339

PATIENT
  Age: 35 Year
  Sex: Female
  Weight: 81.63 kg

DRUGS (2)
  1. LORATADINE. [Suspect]
     Active Substance: LORATADINE
     Indication: MECHANICAL URTICARIA
     Dosage: 10 MG, NIGHTLY
     Route: 048
     Dates: end: 20180319
  2. LORATADINE. [Suspect]
     Active Substance: LORATADINE
     Dosage: 10 MG, NIGHTLY
     Route: 048
     Dates: start: 20180320, end: 2018

REACTIONS (2)
  - Drug ineffective for unapproved indication [Unknown]
  - Rash [Recovering/Resolving]

NARRATIVE: CASE EVENT DATE: 2018
